FAERS Safety Report 7460444-0 (Version None)
Quarter: 2011Q2

REPORT INFORMATION
  Report Type: 
  Country: None (occurrence: None)
  Receive Date: 20110505
  Receipt Date: 20110502
  Transmission Date: 20111010
  Serious: Yes (Hospitalization)
  Sender: FDA-Public Use
  Company Number: B0717030A

PATIENT
  Age: 60 Year
  Sex: Female

DRUGS (2)
  1. AVANDIA [Suspect]
     Dosage: 8MG PER DAY
     Route: 048
     Dates: start: 20000320, end: 20030301
  2. AVANDAMET [Suspect]
     Route: 048
     Dates: start: 20050225, end: 20051101

REACTIONS (3)
  - PALPITATIONS [None]
  - CARDIAC FLUTTER [None]
  - ARRHYTHMIA [None]
